FAERS Safety Report 15868278 (Version 2)
Quarter: 2019Q1

REPORT INFORMATION
  Report Type: Report from Study
  Country: US (occurrence: US)
  Receive Date: 20190125
  Receipt Date: 20190131
  Transmission Date: 20190417
  Serious: No
  Sender: FDA-Public Use
  Company Number: US-OTSUKA-2019_001917

PATIENT
  Age: 54 Year
  Sex: Female

DRUGS (2)
  1. TOLVAPTAN [Suspect]
     Active Substance: TOLVAPTAN
     Indication: CONGENITAL CYSTIC KIDNEY DISEASE
     Dosage: 45 MG, QD (IN MORNING)
     Route: 065
     Dates: start: 20190117, end: 20190118
  2. TOLVAPTAN [Suspect]
     Active Substance: TOLVAPTAN
     Indication: LIVER DISORDER
     Dosage: 15 MG, QD (IN EVENING)
     Route: 065
     Dates: start: 20190117, end: 20190118

REACTIONS (4)
  - Rash [Recovered/Resolved]
  - Hypersensitivity [Unknown]
  - Swelling face [Unknown]
  - Product use in unapproved indication [Unknown]

NARRATIVE: CASE EVENT DATE: 20190117
